FAERS Safety Report 15996670 (Version 5)
Quarter: 2019Q2

REPORT INFORMATION
  Report Type: Report from Study
  Country: US (occurrence: US)
  Receive Date: 20190222
  Receipt Date: 20190619
  Transmission Date: 20190711
  Serious: Yes (Hospitalization)
  Sender: FDA-Public Use
  Company Number: US-ADAMAS PHARMA, LLC-2019ADA00189

PATIENT
  Age: 80 Year
  Sex: Female

DRUGS (16)
  1. GABAPENTIN. [Concomitant]
     Active Substance: GABAPENTIN
     Dosage: 300 MG, 3X/DAY
     Route: 048
  2. VITAMIN D [Concomitant]
     Active Substance: VITAMIN D NOS
  3. GOCOVRI [Suspect]
     Active Substance: AMANTADINE
     Indication: DYSKINESIA
     Dosage: 137 MG, 1X/DAY, AT BEDTIME
     Route: 048
     Dates: start: 20190110, end: 20190116
  4. GOCOVRI [Suspect]
     Active Substance: AMANTADINE
     Dosage: 274 MG, 1X/DAY, AT BEDTIME
     Route: 048
     Dates: start: 20190117, end: 20190203
  5. CALCIUM [Concomitant]
     Active Substance: CALCIUM
     Dosage: UNK
  6. MEMANTINE HCL [Concomitant]
     Active Substance: MEMANTINE
  7. DEEP BRAIN STIMULATION [Concomitant]
  8. STALEVO [Concomitant]
     Active Substance: CARBIDOPA\ENTACAPONE\LEVODOPA
     Dosage: 1 TABLETS, 6X/DAY
  9. CYANOCOBALAMIN. [Concomitant]
     Active Substance: CYANOCOBALAMIN
     Dosage: 100 ?G, 1X/DAY
     Route: 048
  10. MIDODRINE [Concomitant]
     Active Substance: MIDODRINE
     Dosage: 5 MG, 3X/DAY
     Route: 048
  11. CALCIUM CARBONATE-VITAMIN D3 [Concomitant]
     Dosage: 1 DOSAGE UNITS, 2X/DAY WITH MEALS
  12. VITAMIN C [Concomitant]
     Active Substance: ASCORBIC ACID
  13. PAROXETINE. [Concomitant]
     Active Substance: PAROXETINE
     Dosage: 10 MG, 1X/DAY, NIGHTLY
     Route: 048
  14. GOCOVRI [Suspect]
     Active Substance: AMANTADINE
     Indication: DYSKINESIA
     Dosage: 68.5 MG, 1X/DAY
     Route: 048
     Dates: start: 201905
  15. TRAZODONE [Concomitant]
     Active Substance: TRAZODONE HYDROCHLORIDE
     Dosage: UNK
  16. ACETAMINOPHEN. [Concomitant]
     Active Substance: ACETAMINOPHEN
     Dosage: 500 MG EVERY 4 HOURS AS NEEDED FOR MILD PAIN
     Route: 048

REACTIONS (10)
  - Lack of spontaneous speech [Recovering/Resolving]
  - Angular cheilitis [Unknown]
  - Dystonia [Unknown]
  - Urinary tract infection [Recovering/Resolving]
  - Confusional state [Recovering/Resolving]
  - Pain in extremity [Not Recovered/Not Resolved]
  - Unresponsive to stimuli [Not Recovered/Not Resolved]
  - Vitamin D deficiency [Unknown]
  - Hypotonia [Recovering/Resolving]
  - Freezing phenomenon [Recovering/Resolving]

NARRATIVE: CASE EVENT DATE: 2019
